FAERS Safety Report 19968982 (Version 1)
Quarter: 2021Q4

REPORT INFORMATION
  Report Type: Spontaneous
  Country: US (occurrence: US)
  Receive Date: 20211016
  Receipt Date: 20211016
  Transmission Date: 20220303
  Serious: No
  Sender: FDA-Public Use
  Company Number: None

PATIENT
  Age: 75 Year
  Sex: Male

DRUGS (1)
  1. REVLIMID [Suspect]
     Active Substance: LENALIDOMIDE
     Indication: Plasma cell myeloma
     Route: 048
     Dates: start: 20200713, end: 20210924

REACTIONS (3)
  - Drug intolerance [None]
  - Neuropathy peripheral [None]
  - Muscular weakness [None]

NARRATIVE: CASE EVENT DATE: 20211007
